FAERS Safety Report 16248653 (Version 1)
Quarter: 2019Q2

REPORT INFORMATION
  Report Type: Spontaneous
  Country: GB (occurrence: GB)
  Receive Date: 20190429
  Receipt Date: 20190429
  Transmission Date: 20190711
  Serious: Yes (Hospitalization)
  Sender: FDA-Public Use
  Company Number: GB-TEVA-2019-GB-1042593

PATIENT
  Age: 76 Year
  Sex: Male

DRUGS (13)
  1. TERBUTALINE [Concomitant]
     Active Substance: TERBUTALINE
  2. PANTOPRAZOLE [Concomitant]
     Active Substance: PANTOPRAZOLE
  3. LEVETIRACETAM. [Concomitant]
     Active Substance: LEVETIRACETAM
  4. SYMBICORT [Concomitant]
     Active Substance: BUDESONIDE\FORMOTEROL FUMARATE DIHYDRATE
  5. CLOBAZAM. [Concomitant]
     Active Substance: CLOBAZAM
  6. CETIRIZINE [Concomitant]
     Active Substance: CETIRIZINE HYDROCHLORIDE
  7. ACETYLSALICYLIC ACID [Concomitant]
     Active Substance: ASPIRIN
  8. ISOSORBIDE MONONITRATE. [Concomitant]
     Active Substance: ISOSORBIDE MONONITRATE
  9. GLYCERYL TRINITRATE [Concomitant]
     Active Substance: NITROGLYCERIN
  10. ATORVASTATIN [Concomitant]
     Active Substance: ATORVASTATIN
  11. LACOSAMIDE. [Suspect]
     Active Substance: LACOSAMIDE
     Indication: EPILEPSY
     Dosage: 100 MILLIGRAM DAILY;
     Route: 048
     Dates: start: 20190114
  12. PHENYTOIN. [Suspect]
     Active Substance: PHENYTOIN
     Indication: EPILEPSY
     Dosage: 600 MILLIGRAM DAILY;
     Route: 048
  13. TILDIEM LA [Concomitant]
     Active Substance: DILTIAZEM HYDROCHLORIDE

REACTIONS (8)
  - Tremor [Unknown]
  - Toxicity to various agents [Unknown]
  - Nystagmus [Recovered/Resolved]
  - Somnolence [Unknown]
  - Balance disorder [Unknown]
  - Inappropriate schedule of product administration [Unknown]
  - Dizziness [Unknown]
  - Vomiting [Unknown]
